FAERS Safety Report 24123894 (Version 1)
Quarter: 2024Q3

REPORT INFORMATION
  Report Type: Spontaneous
  Country: US (occurrence: US)
  Receive Date: 20240723
  Receipt Date: 20240723
  Transmission Date: 20241016
  Serious: No
  Sender: ROCHE
  Company Number: US-ROCHE-10000026459

PATIENT
  Age: 69 Year
  Sex: Female

DRUGS (16)
  1. VABYSMO [Suspect]
     Active Substance: FARICIMAB\FARICIMAB-SVOA
     Indication: Diabetic retinal oedema
     Route: 050
  2. VABYSMO [Suspect]
     Active Substance: FARICIMAB\FARICIMAB-SVOA
     Route: 050
     Dates: start: 20230117, end: 20230425
  3. LUCENTIS [Suspect]
     Active Substance: RANIBIZUMAB
     Indication: Diabetic retinal oedema
     Route: 050
  4. EYLEA [Concomitant]
     Active Substance: AFLIBERCEPT
     Indication: Diabetic retinal oedema
     Route: 050
     Dates: start: 20191108
  5. PRED FORTE [Concomitant]
     Active Substance: PREDNISOLONE ACETATE
     Indication: Iridocyclitis
     Dosage: FOUR TIMES DAILY IN BOTH EYES
     Route: 031
     Dates: start: 20230429, end: 2023
  6. PRED FORTE [Concomitant]
     Active Substance: PREDNISOLONE ACETATE
     Dosage: TWICE DAILY IN BOTH EYES
     Route: 031
     Dates: start: 20240703
  7. SIMBRINZA [Concomitant]
     Active Substance: BRIMONIDINE TARTRATE\BRINZOLAMIDE
     Indication: Intraocular pressure increased
     Dosage: TWICE DAILY IN BOTH EYES
     Route: 031
     Dates: start: 20240703
  8. AMLODIPINE [Concomitant]
     Active Substance: AMLODIPINE BESYLATE
  9. ASPIRIN [Concomitant]
     Active Substance: ASPIRIN
  10. CRESTOR [Concomitant]
     Active Substance: ROSUVASTATIN CALCIUM
  11. HUMALOG [Concomitant]
     Active Substance: INSULIN LISPRO
  12. LISINOPRIL [Concomitant]
     Active Substance: LISINOPRIL
  13. MELOXICAM [Concomitant]
     Active Substance: MELOXICAM
  14. METFORMIN [Concomitant]
     Active Substance: METFORMIN HYDROCHLORIDE
     Dosage: TAKES TWICE DAILY
  15. PROAIR HFA [Concomitant]
     Active Substance: ALBUTEROL SULFATE
  16. LATANOPROST [Concomitant]
     Active Substance: LATANOPROST
     Indication: Glaucoma
     Dosage: ONCE DAILY IN BOTH EYES
     Route: 031
     Dates: start: 20240528

REACTIONS (2)
  - Retinal vasculitis [Not Recovered/Not Resolved]
  - Iridocyclitis [Recovered/Resolved]

NARRATIVE: CASE EVENT DATE: 20230429
